FAERS Safety Report 5900013-4 (Version None)
Quarter: 2008Q3

REPORT INFORMATION
  Report Type: 
  Country: None (occurrence: None)
  Receive Date: 20080925
  Receipt Date: 20080925
  Transmission Date: 20090109
  Serious: Yes (Other)
  Sender: FDA-Public Use
  Company Number: None

PATIENT
  Age: 42 Year
  Sex: Male
  Weight: 121.564 kg

DRUGS (4)
  1. NARDIL [Suspect]
     Indication: DEPRESSION
     Dosage: 30MG T.I.D. PO
     Route: 048
     Dates: start: 19930401, end: 20080924
  2. NARDIL [Suspect]
     Indication: GENERALISED ANXIETY DISORDER
     Dosage: 30MG T.I.D. PO
     Route: 048
     Dates: start: 19930401, end: 20080924
  3. NARDIL [Suspect]
     Indication: SOCIAL PHOBIA
     Dosage: 30MG T.I.D. PO
     Route: 048
     Dates: start: 19930401, end: 20080924
  4. NARDIL [Suspect]

REACTIONS (3)
  - DRUG INEFFECTIVE [None]
  - PHARMACEUTICAL PRODUCT COMPLAINT [None]
  - WITHDRAWAL SYNDROME [None]
